FAERS Safety Report 8984968 (Version 1)
Quarter: 2012Q4

REPORT INFORMATION
  Report Type: 
  Country: US (occurrence: US)
  Receive Date: 20121225
  Receipt Date: 20121225
  Transmission Date: 20130627
  Serious: Yes (Hospitalization, Other)
  Sender: FDA-Public Use
  Company Number: US-AMGEN-USASP2012080485

PATIENT
  Age: 62 Year
  Sex: Female

DRUGS (1)
  1. ENBREL [Suspect]
     Indication: RHEUMATOID ARTHRITIS
     Dosage: 50 mg, qwk
     Dates: start: 20120115, end: 201207

REACTIONS (5)
  - Wound dehiscence [Recovered/Resolved]
  - Gastrointestinal disorder [Recovered/Resolved]
  - Diverticulitis [Recovered/Resolved]
  - Female genital tract fistula [Recovered/Resolved]
  - Arthritis [Not Recovered/Not Resolved]
